FAERS Safety Report 4958457-3 (Version None)
Quarter: 2006Q1

REPORT INFORMATION
  Report Type: 
  Country: None (occurrence: None)
  Receive Date: 20060330
  Receipt Date: 20060203
  Transmission Date: 20060701
  Serious: Yes (Hospitalization)
  Sender: FDA-Public Use
  Company Number: PT-ABBOTT-06P-130-0324285-00

PATIENT
  Sex: Female

DRUGS (4)
  1. KLACID [Suspect]
     Indication: TOOTH ABSCESS
     Route: 048
     Dates: start: 20051228, end: 20060107
  2. ACETAMINOPHEN [Concomitant]
     Indication: TOOTHACHE
     Route: 048
     Dates: start: 20051225, end: 20051227
  3. IBUPROFEN [Concomitant]
     Indication: TOOTHACHE
     Route: 048
     Dates: start: 20051227, end: 20051228
  4. NIMESULIDE [Concomitant]
     Indication: TOOTHACHE
     Route: 048
     Dates: start: 20051228, end: 20051231

REACTIONS (1)
  - PSYCHOTIC DISORDER [None]
